FAERS Safety Report 20952782 (Version 1)
Quarter: 2022Q2

REPORT INFORMATION
  Report Type: Report from Study
  Country: IN (occurrence: IN)
  Receive Date: 20220613
  Receipt Date: 20220613
  Transmission Date: 20220720
  Serious: Yes (Death)
  Sender: FDA-Public Use
  Company Number: IN-002147023-NVSC2022IN076578

PATIENT

DRUGS (2)
  1. RUXOLITINIB [Suspect]
     Active Substance: RUXOLITINIB
     Indication: Primary myelofibrosis
     Dosage: 10 MG, BID
     Route: 048
     Dates: start: 20220316
  2. RUXOLITINIB [Suspect]
     Active Substance: RUXOLITINIB
     Dosage: 10 MG, BID
     Route: 048
     Dates: start: 20220321

REACTIONS (5)
  - Vision blurred [Recovering/Resolving]
  - Head discomfort [Recovering/Resolving]
  - Pruritus [Recovering/Resolving]
  - Death [Fatal]
  - Eye swelling [Recovering/Resolving]

NARRATIVE: CASE EVENT DATE: 20220318
